FAERS Safety Report 8578702-5 (Version None)
Quarter: 2012Q3

REPORT INFORMATION
  Report Type: 
  Country: None (occurrence: None)
  Receive Date: 20120808
  Receipt Date: 20120802
  Transmission Date: 20120928
  Serious: Yes (Other)
  Sender: FDA-Public Use
  Company Number: PHHY2012BR067545

PATIENT
  Age: 66 Year
  Sex: Female

DRUGS (2)
  1. DIOVAN [Suspect]
     Dosage: 0.5 DF, AT NIGHT, WHEN HER BLOOD PRESSURE WAS HIGHER
  2. DIOVAN [Suspect]
     Indication: HYPERTENSION
     Dosage: 160 MG, ONE TABLET DAILY

REACTIONS (7)
  - DEPRESSED MOOD [None]
  - CATARACT [None]
  - HYPERTENSION [None]
  - WRONG TECHNIQUE IN DRUG USAGE PROCESS [None]
  - VISUAL IMPAIRMENT [None]
  - ANXIETY [None]
  - MEMORY IMPAIRMENT [None]
